FAERS Safety Report 6604325-0 (Version None)
Quarter: 2010Q1

REPORT INFORMATION
  Report Type: 
  Country: None (occurrence: None)
  Receive Date: 20100226
  Receipt Date: 20090820
  Transmission Date: 20100710
  Serious: No
  Sender: FDA-Public Use
  Company Number: A0803307A

PATIENT
  Age: 21 Year
  Sex: Male

DRUGS (2)
  1. LAMICTAL CD [Suspect]
     Indication: BIPOLAR DISORDER
     Dosage: 200MG PER DAY
     Route: 048
     Dates: start: 20090614, end: 20090820
  2. NO CONCURRENT MEDICATION [Concomitant]

REACTIONS (1)
  - RASH PRURITIC [None]
